FAERS Safety Report 9000057 (Version 2)
Quarter: 2013Q1

REPORT INFORMATION
  Report Type: Spontaneous
  Country: FR (occurrence: FR)
  Receive Date: 20130102
  Receipt Date: 20130212
  Transmission Date: 20140127
  Serious: Yes (Hospitalization)
  Sender: FDA-Public Use
  Company Number: FR-SANOFI-AVENTIS-2012SA094059

PATIENT
  Age: 45 Year
  Sex: Female

DRUGS (4)
  1. PLAVIX [Suspect]
     Indication: ARTERIOGRAM CORONARY
     Dosage: LOADING DOSE
     Route: 048
     Dates: start: 20121029, end: 20121029
  2. PLAVIX [Suspect]
     Indication: ARTERIOGRAM CORONARY
     Dosage: LOADING DOSE
     Route: 048
     Dates: start: 20121112, end: 20121112
  3. KARDEGIC [Concomitant]
     Route: 048
  4. SIMVASTATIN [Concomitant]
     Route: 048

REACTIONS (10)
  - Pyrexia [Recovered/Resolved]
  - Rash [Recovered/Resolved]
  - Pruritus [Recovered/Resolved]
  - Arthritis [Recovering/Resolving]
  - Thrombocytopenia [Recovering/Resolving]
  - Inflammation [Recovering/Resolving]
  - Pyrexia [Recovered/Resolved]
  - Hypotension [Recovered/Resolved]
  - Chills [Recovered/Resolved]
  - Oedema peripheral [Recovered/Resolved]
